FAERS Safety Report 10228176 (Version 1)
Quarter: 2014Q2

REPORT INFORMATION
  Report Type: Spontaneous
  Country: TR (occurrence: TR)
  Receive Date: 20140610
  Receipt Date: 20140610
  Transmission Date: 20141212
  Serious: Yes (Hospitalization, Other)
  Sender: FDA-Public Use
  Company Number: TR-WATSON-2014-12530

PATIENT
  Age: 13 Year
  Sex: Female

DRUGS (2)
  1. CYCLOSPORINE (UNKNOWN) [Suspect]
     Indication: COELIAC DISEASE
     Dosage: UNKNOWN
     Route: 065
  2. METHYLPREDNISOLONE [Concomitant]
     Indication: PRODUCT USED FOR UNKNOWN INDICATION
     Dosage: 2 MG/KG, DAILY
     Route: 042

REACTIONS (3)
  - Thrombotic microangiopathy [Recovered/Resolved]
  - Thrombocytopenia [Recovered/Resolved]
  - Multi-organ failure [Recovered/Resolved]
